FAERS Safety Report 7596459-1 (Version None)
Quarter: 2011Q3

REPORT INFORMATION
  Report Type: 
  Country: None (occurrence: None)
  Receive Date: 20110708
  Receipt Date: 20110629
  Transmission Date: 20111222
  Serious: Yes (Hospitalization)
  Sender: FDA-Public Use
  Company Number: US-BIOGENIDEC-2011BI022883

PATIENT
  Age: 67 Year
  Sex: Female

DRUGS (2)
  1. TYSABRI [Suspect]
     Indication: MULTIPLE SCLEROSIS
     Route: 042
     Dates: start: 20061109, end: 20100414
  2. TYSABRI [Suspect]
     Route: 042
     Dates: start: 20110121, end: 20110518

REACTIONS (1)
  - MULTIPLE SCLEROSIS RELAPSE [None]
